FAERS Safety Report 10174959 (Version 2)
Quarter: 2014Q2

REPORT INFORMATION
  Report Type: Spontaneous
  Country: PL (occurrence: PL)
  Receive Date: 20140515
  Receipt Date: 20140515
  Transmission Date: 20141212
  Serious: Yes (Hospitalization)
  Sender: FDA-Public Use
  Company Number: PHHY2012PL092518

PATIENT
  Age: 31 Year
  Sex: Female
  Weight: 45 kg

DRUGS (10)
  1. OMALIZUMAB [Suspect]
     Indication: ASTHMA
     Dosage: 150 MG/MONTH
     Dates: start: 2006
  2. OMALIZUMAB [Suspect]
     Dates: start: 2007
  3. BUDESONIDE [Suspect]
     Indication: ASTHMA
  4. FORMOTEROL [Suspect]
     Indication: ASTHMA
     Dosage: 48 MG, PER DAY
  5. PREDNISONE [Suspect]
     Indication: ASTHMA
     Dosage: 40 MG, PER DAY
  6. PREDNISONE [Suspect]
     Dosage: 2.5 MG (2.5 MG TO 5MG)
  7. PREDNISONE [Suspect]
     Dosage: 5 MG (2.5 MG TO 5MG)
  8. SALBUTAMOL [Suspect]
     Indication: ASTHMA
  9. FLUTICASONE [Concomitant]
     Indication: ASTHMA
     Dosage: 1000 MG, PER DAY
  10. GLUCOCORTICOIDS [Concomitant]
     Route: 048

REACTIONS (2)
  - Urinary tract infection [Unknown]
  - Maternal exposure during pregnancy [Unknown]
